FAERS Safety Report 12675136 (Version 1)
Quarter: 2016Q3

REPORT INFORMATION
  Report Type: Spontaneous
  Country: AU (occurrence: AU)
  Receive Date: 20160822
  Receipt Date: 20160822
  Transmission Date: 20161109
  Serious: Yes (Other)
  Sender: FDA-Public Use
  Company Number: AU-ALLERGAN-1666247US

PATIENT
  Sex: Female

DRUGS (1)
  1. REFRESH CELLUVISC [Suspect]
     Active Substance: CARBOXYMETHYLCELLULOSE SODIUM
     Indication: DRY EYE
     Dosage: UNK, QHS
     Route: 047

REACTIONS (2)
  - Drug ineffective [Unknown]
  - Retinal haemorrhage [Unknown]

NARRATIVE: CASE EVENT DATE: 2015
